FAERS Safety Report 8589707 (Version 2)
Quarter: 2012Q4

REPORT INFORMATION
  Report Type: 
  Country: FR (occurrence: FR)
  Receive Date: 20120601
  Receipt Date: 20120924
  Transmission Date: 20130627
  Serious: Yes (Hospitalization)
  Sender: FDA-Public Use
  Company Number: FR-BRISTOL-MYERS SQUIBB COMPANY-16618530

PATIENT
  Age: 45 Year
  Sex: Female

DRUGS (2)
  1. TAXOL INJ [Suspect]
     Indication: BREAST CANCER METASTATIC
     Dosage: 2nd course on 16Apr2012
     Route: 042
  2. AVASTIN [Suspect]
     Indication: BREAST CANCER METASTATIC
     Dosage: 2nd:16Apr2012
1 df:25mg/ml
10mg/kg(520mg)
Route:percutaneous implantable chamber
     Route: 042

REACTIONS (1)
  - Nasal septum perforation [Not Recovered/Not Resolved]
